FAERS Safety Report 26117291 (Version 1)
Quarter: 2025Q4

REPORT INFORMATION
  Report Type: Spontaneous
  Country: EU (occurrence: EU)
  Receive Date: 20251203
  Receipt Date: 20251203
  Transmission Date: 20260117
  Serious: Yes (Life-Threatening, Hospitalization)
  Sender: AMGEN
  Company Number: EU-AMGEN-ITASP2025234057

PATIENT
  Age: 5 Year
  Sex: Male

DRUGS (1)
  1. ECULIZUMAB [Suspect]
     Active Substance: ECULIZUMAB
     Indication: Haemolytic uraemic syndrome
     Dosage: UNK
     Route: 065

REACTIONS (3)
  - Encephalopathy [Recovered/Resolved]
  - Encephalitis [Recovered/Resolved]
  - Off label use [Unknown]
